FAERS Safety Report 19375465 (Version 2)
Quarter: 2021Q2

REPORT INFORMATION
  Report Type: Report from Study
  Country: IN (occurrence: IN)
  Receive Date: 20210604
  Receipt Date: 20210618
  Transmission Date: 20210717
  Serious: Yes (Death, Hospitalization)
  Sender: FDA-Public Use
  Company Number: NVSC2020IN180295

PATIENT
  Age: 71 Year
  Sex: Male

DRUGS (2)
  1. TASIGNA [Suspect]
     Active Substance: NILOTINIB
     Indication: CHRONIC MYELOID LEUKAEMIA
     Dosage: 300 MG, BID
     Route: 065
     Dates: start: 20190826
  2. TASIGNA [Suspect]
     Active Substance: NILOTINIB
     Dosage: 300 MG, BID
     Route: 065
     Dates: start: 20191112, end: 20191224

REACTIONS (3)
  - Malignant neoplasm progression [Fatal]
  - Multiple organ dysfunction syndrome [Fatal]
  - Chronic myeloid leukaemia [Fatal]

NARRATIVE: CASE EVENT DATE: 20201225
